FAERS Safety Report 15586289 (Version 1)
Quarter: 2018Q4

REPORT INFORMATION
  Report Type: Spontaneous
  Country: JP (occurrence: JP)
  Receive Date: 20181105
  Receipt Date: 20181105
  Transmission Date: 20190205
  Serious: Yes (Hospitalization)
  Sender: FDA-Public Use
  Company Number: JP-JNJFOC-20181103955

PATIENT
  Age: 54 Year
  Sex: Male

DRUGS (6)
  1. NESINA [Concomitant]
     Active Substance: ALOGLIPTIN BENZOATE
     Route: 065
  2. MUCODYNE [Concomitant]
     Active Substance: CARBOCYSTEINE
     Route: 065
  3. UNISIA [Concomitant]
     Active Substance: AMLODIPINE BESYLATE\CANDESARTAN CILEXETIL
     Route: 065
  4. CANAGLU [Suspect]
     Active Substance: CANAGLIFLOZIN
     Indication: PRODUCT USED FOR UNKNOWN INDICATION
     Route: 048
     Dates: start: 20171125, end: 20181002
  5. TENORMIN [Concomitant]
     Active Substance: ATENOLOL
     Route: 065
  6. KLARICID [Concomitant]
     Active Substance: CLARITHROMYCIN
     Route: 065

REACTIONS (2)
  - Cerebral infarction [Unknown]
  - Diplopia [Unknown]

NARRATIVE: CASE EVENT DATE: 20180925
